FAERS Safety Report 11197449 (Version 1)
Quarter: 2015Q2

REPORT INFORMATION
  Report Type: Spontaneous
  Country: FR (occurrence: FR)
  Receive Date: 20150617
  Receipt Date: 20150617
  Transmission Date: 20150821
  Serious: Yes (Hospitalization, Other)
  Sender: FDA-Public Use
  Company Number: FR-GLAXOSMITHKLINE-FR2015GSK082596

PATIENT
  Age: 47 Year
  Sex: Male

DRUGS (3)
  1. PREDNISOLONE. [Suspect]
     Active Substance: PREDNISOLONE
     Indication: SUPERINFECTION
     Dosage: 20 MG, UNK
     Route: 048
     Dates: start: 20101201, end: 20101203
  2. KETEK [Suspect]
     Active Substance: TELITHROMYCIN
     Indication: SUPERINFECTION
     Dosage: 2 UNK, UNK
     Route: 048
     Dates: start: 20101201, end: 20101203
  3. SERETIDE [Suspect]
     Active Substance: FLUTICASONE FUROATE\SALMETEROL XINAFOATE
     Indication: PRODUCT USED FOR UNKNOWN INDICATION
     Dosage: UNK
     Dates: start: 20101201, end: 20101203

REACTIONS (3)
  - Visual impairment [Recovered/Resolved]
  - Malaise [Recovered/Resolved]
  - Loss of consciousness [Recovered/Resolved]

NARRATIVE: CASE EVENT DATE: 20101203
